FAERS Safety Report 9968715 (Version 1)
Quarter: 2014Q1

REPORT INFORMATION
  Report Type: Report from Study
  Country: US (occurrence: US)
  Receive Date: 20140306
  Receipt Date: 20140306
  Transmission Date: 20141002
  Serious: No
  Sender: FDA-Public Use
  Company Number: US-ABBVIE-13P-163-1145884-00

PATIENT
  Age: 51 Year
  Sex: Female

DRUGS (3)
  1. HUMIRA [Suspect]
     Indication: PSORIASIS
     Dates: start: 20130716, end: 201309
  2. HUMIRA [Suspect]
     Dates: start: 201309
  3. ARIMIDEX [Concomitant]
     Indication: BREAST CANCER
     Dosage: DAILY

REACTIONS (1)
  - Drug effect decreased [Not Recovered/Not Resolved]
